FAERS Safety Report 16793839 (Version 1)
Quarter: 2019Q3

REPORT INFORMATION
  Report Type: Report from Study
  Country: IT (occurrence: IT)
  Receive Date: 20190911
  Receipt Date: 20190911
  Transmission Date: 20191005
  Serious: Yes (Other)
  Sender: FDA-Public Use
  Company Number: IT-TEVA-2019-IT-1104000

PATIENT
  Age: 9 Year
  Sex: Male
  Weight: 37 kg

DRUGS (10)
  1. ETOPOSIDE. [Suspect]
     Active Substance: ETOPOSIDE
     Indication: ACUTE LYMPHOCYTIC LEUKAEMIA
     Dosage: 234 MG
     Route: 042
     Dates: start: 20190113, end: 20190114
  2. METHOTREXATE. [Suspect]
     Active Substance: METHOTREXATE
     Indication: ACUTE LYMPHOCYTIC LEUKAEMIA
     Dosage: 12 MG
     Route: 037
     Dates: start: 20181221, end: 20190111
  3. URBASON [Concomitant]
     Active Substance: METHYLPREDNISOLONE
     Indication: PREMEDICATION
     Dosage: 10 MG
     Route: 037
     Dates: start: 20181221, end: 20190111
  4. ZOFRAN [Concomitant]
     Active Substance: ONDANSETRON HYDROCHLORIDE
     Indication: PREMEDICATION
     Dosage: 12 MG
     Route: 042
     Dates: start: 20190111, end: 20190115
  5. BACTRIM [Concomitant]
     Active Substance: SULFAMETHOXAZOLE\TRIMETHOPRIM
     Dosage: 2 DOSAGE FORMS
     Route: 048
  6. DEURSIL [Concomitant]
     Active Substance: URSODIOL
     Dosage: 300 MG
     Route: 048
  7. DECADRON [Concomitant]
     Active Substance: DEXAMETHASONE
     Dosage: 23.4 MG
     Route: 042
     Dates: start: 20190111, end: 20190115
  8. CYTARABINE HYDROCHLORIDE [Suspect]
     Active Substance: CYTARABINE HYDROCHLORIDE
     Indication: ACUTE LYMPHOCYTIC LEUKAEMIA
     Dosage: 4680 MG
     Route: 042
     Dates: start: 20190111, end: 20190112
  9. MYCOSTATIN [Concomitant]
     Active Substance: NYSTATIN
     Dosage: 15 ML
     Route: 048
  10. ANTRA [Concomitant]
     Active Substance: OMEPRAZOLE
     Dosage: 40 MG
     Route: 042

REACTIONS (2)
  - Periorbital oedema [Recovered/Resolved]
  - Flushing [Recovered/Resolved]

NARRATIVE: CASE EVENT DATE: 20190113
